FAERS Safety Report 12268798 (Version 1)
Quarter: 2016Q2

REPORT INFORMATION
  Report Type: Spontaneous
  Country: CN (occurrence: CN)
  Receive Date: 20160414
  Receipt Date: 20160414
  Transmission Date: 20160815
  Serious: Yes (Hospitalization)
  Sender: FDA-Public Use
  Company Number: CN-PFIZER INC-2016205830

PATIENT
  Age: 47 Year
  Sex: Male
  Weight: 76 kg

DRUGS (2)
  1. LIPITOR [Suspect]
     Active Substance: ATORVASTATIN CALCIUM
     Indication: DRUG THERAPY
     Dosage: 10 MG, 1X/DAY
     Route: 048
     Dates: start: 20150930, end: 20151002
  2. MERISLON [Suspect]
     Active Substance: BETAHISTINE MESILATE
     Indication: DRUG THERAPY
     Dosage: 12 MG, 3X/DAY
     Route: 048
     Dates: start: 20150930, end: 20151002

REACTIONS (4)
  - Rash [Recovering/Resolving]
  - Scar [Recovering/Resolving]
  - Erythema [Recovering/Resolving]
  - Papule [Recovering/Resolving]

NARRATIVE: CASE EVENT DATE: 20151001
